FAERS Safety Report 11363768 (Version 1)
Quarter: 2015Q3

REPORT INFORMATION
  Report Type: Report from Study
  Country: BR (occurrence: BR)
  Receive Date: 20150811
  Receipt Date: 20150811
  Transmission Date: 20151125
  Serious: Yes (Other)
  Sender: FDA-Public Use
  Company Number: BR-ABBVIE-15K-020-1441643-00

PATIENT
  Age: 56 Year
  Sex: Male

DRUGS (1)
  1. HUMIRA [Suspect]
     Active Substance: ADALIMUMAB
     Indication: PSORIASIS
     Route: 058
     Dates: start: 20111101, end: 20150729

REACTIONS (2)
  - Myocardial infarction [Recovered/Resolved]
  - Device occlusion [Unknown]

NARRATIVE: CASE EVENT DATE: 201412
